FAERS Safety Report 8138102-9 (Version None)
Quarter: 2012Q1

REPORT INFORMATION
  Report Type: 
  Country: None (occurrence: None)
  Receive Date: 20120215
  Receipt Date: 20120215
  Transmission Date: 20120608
  Serious: Yes (Other)
  Sender: FDA-Public Use
  Company Number: None

PATIENT
  Sex: Male

DRUGS (1)
  1. VOTRIENT [Suspect]
     Indication: RENAL CELL CARCINOMA
     Dosage: 4 TABLETS
     Route: 048
     Dates: start: 20110409, end: 20120207

REACTIONS (7)
  - DYSPNOEA [None]
  - DIARRHOEA [None]
  - RETINAL TEAR [None]
  - VOMITING [None]
  - METASTASES TO LUNG [None]
  - FATIGUE [None]
  - NAUSEA [None]
